FAERS Safety Report 9587759 (Version 2)
Quarter: 2013Q4

REPORT INFORMATION
  Report Type: Report from Study
  Country: US (occurrence: US)
  Receive Date: 20131003
  Receipt Date: 20131014
  Transmission Date: 20140711
  Serious: Yes (Death, Other)
  Sender: FDA-Public Use
  Company Number: US-TAKEDA-2013TUS001127

PATIENT
  Sex: 0

DRUGS (2)
  1. ULORIC [Suspect]
     Dosage: 40 MG, QD
     Route: 048
  2. COLCRYS [Suspect]
     Dosage: 0.6 MG, QD

REACTIONS (2)
  - Death [Fatal]
  - Cardiac failure congestive [Fatal]
